FAERS Safety Report 5674260-3 (Version None)
Quarter: 2008Q2

REPORT INFORMATION
  Report Type: 
  Country: None (occurrence: None)
  Receive Date: 20080225
  Receipt Date: 20071109
  Transmission Date: 20081010
  Serious: No
  Sender: FDA-Public Use
  Company Number: US-1164589

PATIENT
  Sex: Male

DRUGS (2)
  1. NEVANAC [Suspect]
     Indication: PROPHYLAXIS
     Dosage: (OPHTHALMIC)
     Route: 047
  2. ECONOPRED PLUS SUPENSION [Suspect]
     Indication: PROPHYLAXIS
     Dosage: (OPHTHALMIC)
     Route: 047
     Dates: start: 20071015, end: 20071215

REACTIONS (2)
  - ALOPECIA [None]
  - HYPOACUSIS [None]
